FAERS Safety Report 22588751 (Version 4)
Quarter: 2023Q4

REPORT INFORMATION
  Report Type: Spontaneous
  Country: US (occurrence: US)
  Receive Date: 20230612
  Receipt Date: 20231218
  Transmission Date: 20240110
  Serious: No
  Sender: FDA-Public Use
  Company Number: US-BRISTOL-MYERS SQUIBB COMPANY-2023-082096

PATIENT
  Age: 77 Year
  Sex: Female
  Weight: 65.77 kg

DRUGS (2)
  1. REVLIMID [Suspect]
     Active Substance: LENALIDOMIDE
     Indication: Plasma cell myeloma
     Dosage: QD 14DON 7DOFF
     Route: 048
  2. REVLIMID [Suspect]
     Active Substance: LENALIDOMIDE
     Dosage: FREQ - 2WKSON/2WKOFF
     Route: 048

REACTIONS (4)
  - White blood cell count decreased [Unknown]
  - Off label use [Unknown]
  - Ear infection [Unknown]
  - Full blood count decreased [Not Recovered/Not Resolved]
